FAERS Safety Report 11337382 (Version 1)
Quarter: 2015Q3

REPORT INFORMATION
  Report Type: Spontaneous
  Country: US (occurrence: US)
  Receive Date: 20150803
  Receipt Date: 20150803
  Transmission Date: 20151125
  Serious: No
  Sender: FDA-Public Use
  Company Number: US-ELI_LILLY_AND_COMPANY-US200608000508

PATIENT
  Age: 50 Year
  Sex: Female
  Weight: 108.84 kg

DRUGS (19)
  1. VASOTEC [Concomitant]
     Active Substance: ENALAPRIL MALEATE
     Dosage: 10 MG, DAILY (1/D)
     Route: 048
     Dates: start: 20010316
  2. RELAFEN [Concomitant]
     Active Substance: NABUMETONE
     Indication: ARTHRITIS
  3. ZYPREXA [Suspect]
     Active Substance: OLANZAPINE
     Dosage: 30 MG, UNK
     Dates: start: 20000511, end: 20000522
  4. RISPERDAL [Concomitant]
     Active Substance: RISPERIDONE
     Dosage: 2 MG, 2/D
     Route: 048
     Dates: start: 20000510, end: 20000511
  5. ENAPRIL                            /00574901/ [Concomitant]
     Indication: HYPERTENSION
     Dosage: 20 MG, UNK
     Route: 048
  6. IBUPROFEN. [Concomitant]
     Active Substance: IBUPROFEN
     Dosage: 1 D/F, AS NEEDED
     Route: 048
  7. ZESTRIL [Concomitant]
     Active Substance: LISINOPRIL
     Dosage: 10 MG, DAILY (1/D)
     Route: 048
     Dates: start: 20010207
  8. ZYPREXA [Suspect]
     Active Substance: OLANZAPINE
     Dosage: 10 MG, EACH EVENING
     Dates: start: 20000519
  9. ABILIFY [Concomitant]
     Active Substance: ARIPIPRAZOLE
     Route: 048
     Dates: start: 200509
  10. VASOTEC [Concomitant]
     Active Substance: ENALAPRIL MALEATE
     Indication: BLOOD PRESSURE MEASUREMENT
     Dosage: 5 MG, DAILY (1/D)
     Route: 048
     Dates: start: 20000504
  11. ATIVAN [Concomitant]
     Active Substance: LORAZEPAM
     Indication: ANXIETY
     Dosage: 2 MG, 3/D
     Route: 030
  12. ZYPREXA [Suspect]
     Active Substance: OLANZAPINE
     Dosage: 20 MG, UNK
     Route: 048
     Dates: start: 20000522
  13. VASOTEC [Concomitant]
     Active Substance: ENALAPRIL MALEATE
     Dosage: 20 MG, DAILY (1/D)
     Route: 048
  14. TYLENOL                                 /SCH/ [Concomitant]
     Indication: PAIN
     Dosage: 1 D/F, AS NEEDED
  15. ZYPREXA [Suspect]
     Active Substance: OLANZAPINE
     Indication: BIPOLAR DISORDER
     Dosage: 5 MG, EACH EVENING
     Route: 048
     Dates: start: 20000502, end: 20000505
  16. ZYPREXA [Suspect]
     Active Substance: OLANZAPINE
     Dosage: 20 MG, EACH EVENING
     Route: 048
     Dates: start: 20000505, end: 20000511
  17. PRINIVIL [Concomitant]
     Active Substance: LISINOPRIL
     Dosage: 5 MG, UNK
  18. ZESTRIL [Concomitant]
     Active Substance: LISINOPRIL
     Dosage: 5 MG, DAILY (1/D)
     Route: 048
  19. ZYPREXA [Suspect]
     Active Substance: OLANZAPINE
     Dosage: 15 MG, DAILY (1/D)
     Route: 048
     Dates: start: 20010207

REACTIONS (17)
  - Swelling [Unknown]
  - Restlessness [Unknown]
  - Dizziness [Unknown]
  - Weight increased [Unknown]
  - Increased appetite [Unknown]
  - Cardiac murmur [Unknown]
  - Tremor [Unknown]
  - Constipation [Unknown]
  - Somnolence [Unknown]
  - Hypercholesterolaemia [Unknown]
  - Diabetes mellitus [Not Recovered/Not Resolved]
  - Prescribed overdose [Recovered/Resolved]
  - Pyrexia [Unknown]
  - Dry mouth [Unknown]
  - Ventricular hypertrophy [Unknown]
  - Hepatic enzyme increased [Unknown]
  - Headache [Unknown]

NARRATIVE: CASE EVENT DATE: 20000511
